FAERS Safety Report 8956025 (Version 1)
Quarter: 2012Q4

REPORT INFORMATION
  Report Type: 
  Country: US (occurrence: US)
  Receive Date: 20121210
  Receipt Date: 20121210
  Transmission Date: 20130627
  Serious: No
  Sender: FDA-Public Use
  Company Number: US-009507513-1212USA003404

PATIENT
  Age: 18 Month

DRUGS (1)
  1. COPPERTONE KIDS SPF 50 SPRAY [Suspect]
     Indication: PRODUCT USED FOR UNKNOWN INDICATION
     Dosage: UNK, Unknown
     Route: 061
     Dates: start: 20120716

REACTIONS (2)
  - Swelling face [Recovering/Resolving]
  - Eye irritation [Unknown]
